FAERS Safety Report 11142482 (Version 1)
Quarter: 2015Q2

REPORT INFORMATION
  Report Type: Spontaneous
  Country: RO (occurrence: US)
  Receive Date: 20150525
  Receipt Date: 20150525
  Transmission Date: 20150821
  Serious: No
  Sender: FDA-Public Use
  Company Number: RO-JNJFOC-20150303526

PATIENT
  Age: 8 Year
  Sex: Male

DRUGS (1)
  1. RISPERDAL CONSTA [Suspect]
     Active Substance: RISPERIDONE
     Indication: AUTISM
     Route: 030
     Dates: start: 2002

REACTIONS (2)
  - Off label use [Unknown]
  - Gynaecomastia [Not Recovered/Not Resolved]
